FAERS Safety Report 4940762-8 (Version None)
Quarter: 2006Q1

REPORT INFORMATION
  Report Type: 
  Country: None (occurrence: None)
  Receive Date: 20060313
  Receipt Date: 20060215
  Transmission Date: 20060701
  Serious: Yes (Hospitalization)
  Sender: FDA-Public Use
  Company Number: US-AMGEN-KDL169077

PATIENT
  Sex: Female

DRUGS (2)
  1. ENBREL [Suspect]
     Indication: RHEUMATOID ARTHRITIS
     Route: 058
     Dates: start: 20041119
  2. METHOTREXATE [Concomitant]
     Dates: start: 20010101

REACTIONS (4)
  - CONDITION AGGRAVATED [None]
  - PNEUMOTHORAX [None]
  - PULMONARY GRANULOMA [None]
  - RHEUMATOID ARTHRITIS [None]
